FAERS Safety Report 6261399-7 (Version None)
Quarter: 2009Q3

REPORT INFORMATION
  Report Type: 
  Country: None (occurrence: None)
  Receive Date: 20090709
  Receipt Date: 20090608
  Transmission Date: 20100115
  Serious: No
  Sender: FDA-Public Use
  Company Number: US-BAYER-200922999NA

PATIENT
  Age: 87 Year
  Sex: Male

DRUGS (1)
  1. BETAPACE AF [Suspect]
     Indication: ATRIAL FIBRILLATION
     Dosage: TOTAL DAILY DOSE: 320 MG

REACTIONS (1)
  - CARDIAC DISORDER [None]
